FAERS Safety Report 13980620 (Version 3)
Quarter: 2017Q4

REPORT INFORMATION
  Report Type: Report from Study
  Country: US (occurrence: US)
  Receive Date: 20170918
  Receipt Date: 20171030
  Transmission Date: 20180321
  Serious: Yes (Other)
  Sender: FDA-Public Use
  Company Number: US-AMGEN-USASL2017138485

PATIENT
  Age: 57 Year
  Sex: Female
  Weight: 60.77 kg

DRUGS (1)
  1. REPATHA [Suspect]
     Active Substance: EVOLOCUMAB
     Indication: BLOOD CHOLESTEROL INCREASED
     Dosage: 140 MG, Q2WK
     Route: 065

REACTIONS (8)
  - Fatigue [Unknown]
  - Early satiety [Unknown]
  - Abdominal pain upper [Unknown]
  - Weight increased [Unknown]
  - Haematochezia [Unknown]
  - Pancreatic disorder [Unknown]
  - Asthenia [Unknown]
  - Feeling cold [Unknown]

NARRATIVE: CASE EVENT DATE: 201707
